FAERS Safety Report 9142319 (Version 1)
Quarter: 2013Q1

REPORT INFORMATION
  Report Type: Spontaneous
  Country: CO (occurrence: CO)
  Receive Date: 20130306
  Receipt Date: 20130306
  Transmission Date: 20140127
  Serious: Yes (Hospitalization)
  Sender: FDA-Public Use
  Company Number: CO-AMGEN-COLSP2013015097

PATIENT
  Age: 24 Year
  Sex: Female

DRUGS (1)
  1. NEULASTIM [Suspect]
     Indication: NEUTROPENIA
     Dosage: 6 MG, Q3WK (1 IN 21 D)
     Route: 058
     Dates: start: 20130215

REACTIONS (1)
  - Headache [Recovered/Resolved]
